FAERS Safety Report 7150504-6 (Version None)
Quarter: 2010Q4

REPORT INFORMATION
  Report Type: 
  Country: None (occurrence: None)
  Receive Date: 20101210
  Receipt Date: 20101129
  Transmission Date: 20110411
  Serious: Yes (Life-Threatening)
  Sender: FDA-Public Use
  Company Number: JP-PFIZER INC-2010168435

PATIENT
  Age: 69 Year
  Sex: Male
  Weight: 59 kg

DRUGS (1)
  1. CAMPTOSAR [Suspect]
     Indication: GASTRIC CANCER
     Dosage: 150 MG/M2, UNK
     Route: 041
     Dates: start: 20101008, end: 20101112

REACTIONS (1)
  - ILEUS [None]
